FAERS Safety Report 5121922-2 (Version None)
Quarter: 2006Q4

REPORT INFORMATION
  Report Type: 
  Country: None (occurrence: None)
  Receive Date: 20061006
  Receipt Date: 20061003
  Transmission Date: 20070319
  Serious: Yes (Other)
  Sender: FDA-Public Use
  Company Number: US-BRISTOL-MYERS SQUIBB COMPANY-13528518

PATIENT

DRUGS (1)
  1. ABILIFY [Suspect]

REACTIONS (1)
  - DEMENTIA ALZHEIMER'S TYPE [None]
